FAERS Safety Report 5347365-4 (Version None)
Quarter: 2007Q2

REPORT INFORMATION
  Report Type: 
  Country: None (occurrence: None)
  Receive Date: 20070606
  Receipt Date: 20070529
  Transmission Date: 20071010
  Serious: Yes (Other)
  Sender: FDA-Public Use
  Company Number: US-JNJFOC-20070600042

PATIENT
  Sex: Female

DRUGS (8)
  1. FENTANYL TRANSDERMAL SYSTEM [Suspect]
     Indication: PAIN
     Route: 062
  2. INDERAL [Concomitant]
     Indication: MIGRAINE
     Route: 048
  3. THYROID TAB [Concomitant]
     Route: 048
  4. ASPIRIN [Concomitant]
     Route: 048
  5. GRAPESEED [Concomitant]
     Dosage: 1 OR 2 TABLETS PER DAY
     Route: 048
  6. LORTAB [Concomitant]
     Indication: PAIN
     Route: 048
  7. BACTRIM [Concomitant]
     Indication: INFECTION
     Dosage: ONE-HALF TABLET DAILY
     Route: 048
  8. TYLENOL [Concomitant]
     Indication: PAIN
     Dosage: AS NEEDED
     Route: 048

REACTIONS (4)
  - HYPOAESTHESIA [None]
  - PARAESTHESIA [None]
  - PHARMACEUTICAL PRODUCT COMPLAINT [None]
  - WRONG TECHNIQUE IN DRUG USAGE PROCESS [None]
